FAERS Safety Report 12764524 (Version 1)
Quarter: 2016Q3

REPORT INFORMATION
  Report Type: Spontaneous
  Country: US (occurrence: US)
  Receive Date: 20160920
  Receipt Date: 20160920
  Transmission Date: 20161109
  Serious: No
  Sender: FDA-Public Use
  Company Number: US-ELI_LILLY_AND_COMPANY-US201609006269

PATIENT
  Sex: Male

DRUGS (3)
  1. AXIRON [Suspect]
     Active Substance: TESTOSTERONE
     Dosage: 1 DF, QD
     Route: 061
  2. AXIRON [Suspect]
     Active Substance: TESTOSTERONE
     Indication: BLOOD TESTOSTERONE DECREASED
     Dosage: 1 DF, QD
     Route: 061
     Dates: start: 20160711
  3. AXIRON [Suspect]
     Active Substance: TESTOSTERONE
     Dosage: 1 DF, QD
     Route: 061

REACTIONS (4)
  - Pain [Unknown]
  - Skin irritation [Unknown]
  - Skin lesion [Unknown]
  - Skin discolouration [Unknown]
